FAERS Safety Report 15902606 (Version 1)
Quarter: 2019Q1

REPORT INFORMATION
  Report Type: Report from Study
  Country: KR (occurrence: KR)
  Receive Date: 20190201
  Receipt Date: 20190201
  Transmission Date: 20190417
  Serious: Yes (Death)
  Sender: FDA-Public Use
  Company Number: KR-DSJP-DSJ-2019-103458

PATIENT

DRUGS (5)
  1. NESINA [Concomitant]
     Active Substance: ALOGLIPTIN BENZOATE
     Indication: DIABETES MELLITUS
     Dosage: 25 MG, QD
     Route: 048
     Dates: start: 2017
  2. ADALAT [Concomitant]
     Active Substance: NIFEDIPINE
     Indication: HYPERTENSION
     Dosage: 66 MG, QD
     Route: 048
     Dates: start: 2017
  3. CNOXANE [Concomitant]
     Indication: DEEP VEIN THROMBOSIS
     Dosage: 40 MG, BID
     Route: 058
     Dates: start: 20180601, end: 20180605
  4. MEDIAVEN [Concomitant]
     Active Substance: NAFTAZONE
     Indication: GASTRIC DISORDER
     Dosage: 10 MG, TID
     Route: 048
     Dates: start: 20180605
  5. EDOXABAN [Suspect]
     Active Substance: EDOXABAN TOSYLATE
     Indication: PRODUCT USED FOR UNKNOWN INDICATION
     Dosage: 30 MG, QD
     Route: 048
     Dates: start: 20180606, end: 20180912

REACTIONS (1)
  - Death [Fatal]
